FAERS Safety Report 12799384 (Version 1)
Quarter: 2016Q3

REPORT INFORMATION
  Report Type: Spontaneous
  Country: DE (occurrence: DE)
  Receive Date: 20160930
  Receipt Date: 20160930
  Transmission Date: 20161109
  Serious: Yes (Other)
  Sender: FDA-Public Use
  Company Number: DE-GILEAD-2016-0234196

PATIENT
  Age: 58 Year

DRUGS (1)
  1. IDELALISIB [Suspect]
     Active Substance: IDELALISIB
     Indication: CHRONIC LYMPHOCYTIC LEUKAEMIA
     Dosage: 150 MG, QD
     Route: 065

REACTIONS (3)
  - Off label use [Recovered/Resolved]
  - Chronic lymphocytic leukaemia [Unknown]
  - Pertussis [Unknown]
